FAERS Safety Report 14687139 (Version 1)
Quarter: 2018Q1

REPORT INFORMATION
  Report Type: Spontaneous
  Country: FR (occurrence: FR)
  Receive Date: 20180328
  Receipt Date: 20180328
  Transmission Date: 20180509
  Serious: Yes (Other)
  Sender: FDA-Public Use
  Company Number: FR-MERCK KGAA-2044657

PATIENT
  Age: 55 Year
  Sex: Female

DRUGS (1)
  1. NOVOTHYROX [Suspect]
     Active Substance: LEVOTHYROXINE SODIUM
     Indication: PRODUCT USED FOR UNKNOWN INDICATION

REACTIONS (24)
  - Eye swelling [None]
  - Tachycardia [None]
  - Abdominal pain [None]
  - Feeling drunk [None]
  - Visual impairment [Recovering/Resolving]
  - Social avoidant behaviour [None]
  - Mood altered [None]
  - Emotional distress [None]
  - Suicidal ideation [None]
  - Fatigue [None]
  - Loss of personal independence in daily activities [None]
  - Asthenia [None]
  - Rectal haemorrhage [Recovering/Resolving]
  - Amnesia [Recovering/Resolving]
  - Feeling abnormal [None]
  - Dyspnoea [None]
  - Fall [None]
  - Disturbance in attention [None]
  - Irritability [None]
  - Decreased activity [None]
  - Dizziness [None]
  - Blood thyroid stimulating hormone increased [None]
  - Insomnia [None]
  - Malaise [Recovering/Resolving]

NARRATIVE: CASE EVENT DATE: 20170920
